FAERS Safety Report 25193728 (Version 1)
Quarter: 2025Q2

REPORT INFORMATION
  Report Type: Report from Study
  Country: NL (occurrence: NL)
  Receive Date: 20250414
  Receipt Date: 20250414
  Transmission Date: 20250717
  Serious: Yes (Death)
  Sender: ABBVIE
  Company Number: NL-ABBVIE-6227184

PATIENT

DRUGS (2)
  1. VENCLEXTA [Suspect]
     Active Substance: VENETOCLAX
     Indication: Product used for unknown indication
     Route: 048
  2. NAVITOCLAX [Suspect]
     Active Substance: NAVITOCLAX
     Indication: Product used for unknown indication
     Route: 065

REACTIONS (1)
  - Death [Fatal]
